FAERS Safety Report 6198652-1 (Version None)
Quarter: 2009Q2

REPORT INFORMATION
  Report Type: 
  Country: None (occurrence: None)
  Receive Date: 20090519
  Receipt Date: 20090519
  Transmission Date: 20091009
  Serious: Yes (Hospitalization)
  Sender: FDA-Public Use
  Company Number: None

PATIENT
  Age: 72 Year
  Sex: Male
  Weight: 95.4 kg

DRUGS (19)
  1. OXALIPLATIN [Suspect]
     Indication: OESOPHAGEAL CARCINOMA
     Dosage: 280MG IV ONCE
     Route: 042
     Dates: start: 20090512
  2. AMBIEN [Concomitant]
  3. VICODIN [Concomitant]
  4. XANAX [Concomitant]
  5. VERAPAMIL [Concomitant]
  6. CARDURA [Concomitant]
  7. PEPCID [Concomitant]
  8. METAMUCIL [Concomitant]
  9. STOOL SOFTENER [Concomitant]
  10. LOVAZA [Concomitant]
  11. ASCORBIC ACID [Concomitant]
  12. PALMETTO FRUIT [Concomitant]
  13. NIACIN [Concomitant]
  14. COQ-10 [Concomitant]
  15. GINKOBA BILOBA [Concomitant]
  16. GARLIC [Concomitant]
  17. PARSLEY [Concomitant]
  18. VITAMIN D3 [Concomitant]
  19. FLUOROURACIL [Concomitant]

REACTIONS (3)
  - DRUG HYPERSENSITIVITY [None]
  - PYREXIA [None]
  - RASH [None]
